FAERS Safety Report 8563320 (Version 2)
Quarter: 2014Q1

REPORT INFORMATION
  Report Type: Spontaneous
  Country: FR (occurrence: FR)
  Receive Date: 20120515
  Receipt Date: 20140103
  Transmission Date: 20141002
  Serious: Yes (Hospitalization, Other)
  Sender: FDA-Public Use
  Company Number: FR-ELI_LILLY_AND_COMPANY-FR201205000922

PATIENT
  Age: 52 Year
  Sex: Male

DRUGS (6)
  1. ZYPREXA [Suspect]
     Indication: DEPRESSION
     Dosage: 5 MG, QD
     Route: 048
     Dates: start: 20111123, end: 20120105
  2. SEROPLEX [Suspect]
     Dosage: 20 MG, UNK
     Dates: start: 201010, end: 201101
  3. RASILEZ HCT [Suspect]
     Indication: HYPERTENSION
     Dosage: UNK
     Dates: end: 20120121
  4. ANAFRANIL [Suspect]
     Indication: DEPRESSION
     Dosage: 37.5 MG, QD
     Dates: start: 201201, end: 20120121
  5. ALPRAZOLAM [Suspect]
     Indication: MENTAL DISORDER
     Dosage: 0.75 MG, QD
     Dates: end: 20120121
  6. PRAZEPAM [Concomitant]

REACTIONS (1)
  - Hepatic failure [Recovering/Resolving]
